FAERS Safety Report 25242759 (Version 1)
Quarter: 2025Q2

REPORT INFORMATION
  Report Type: Report from Study
  Country: US (occurrence: US)
  Receive Date: 20250427
  Receipt Date: 20250427
  Transmission Date: 20250716
  Serious: Yes (Other)
  Sender: ABBVIE
  Company Number: US-ABBVIE-6210054

PATIENT
  Age: 65 Year
  Sex: Female

DRUGS (7)
  1. HUMIRA [Suspect]
     Active Substance: ADALIMUMAB
     Indication: Psoriasis
     Dosage: CITRATE FREE, START DATE TEXT: 4-5 YEARS?SOLUTION FOR INJECTION IN PRE-FILLED PEN
     Route: 058
     Dates: end: 202412
  2. VITAMIN E [Concomitant]
     Active Substance: .ALPHA.-TOCOPHEROL
     Indication: Product used for unknown indication
  3. NOVOLOG [Concomitant]
     Active Substance: INSULIN ASPART
     Indication: Diabetes mellitus
  4. FISH OIL [Concomitant]
     Active Substance: FISH OIL
     Indication: Product used for unknown indication
  5. VITAMIN B12 [Concomitant]
     Active Substance: CYANOCOBALAMIN
     Indication: Product used for unknown indication
  6. VITAMIN D [Concomitant]
     Active Substance: VITAMIN D NOS
     Indication: Product used for unknown indication
  7. TRESIBA [Concomitant]
     Active Substance: INSULIN DEGLUDEC
     Indication: Diabetes mellitus

REACTIONS (16)
  - Large intestine polyp [Recovered/Resolved]
  - Wrist fracture [Not Recovered/Not Resolved]
  - Memory impairment [Not Recovered/Not Resolved]
  - Pain [Not Recovered/Not Resolved]
  - Haemoglobin decreased [Recovering/Resolving]
  - Platelet count decreased [Recovering/Resolving]
  - Fall [Recovered/Resolved]
  - Large intestine polyp [Recovered/Resolved]
  - Dyspnoea [Recovering/Resolving]
  - Psoriasis [Not Recovered/Not Resolved]
  - Hepatic cirrhosis [Unknown]
  - Balance disorder [Unknown]
  - Skin haemorrhage [Unknown]
  - Contusion [Unknown]
  - Pulmonary mass [Unknown]
  - Pain [Unknown]

NARRATIVE: CASE EVENT DATE: 20220101
